FAERS Safety Report 15706480 (Version 2)
Quarter: 2019Q1

REPORT INFORMATION
  Report Type: Spontaneous
  Country: DE (occurrence: DE)
  Receive Date: 20181210
  Receipt Date: 20190116
  Transmission Date: 20190417
  Serious: Yes (Hospitalization)
  Sender: FDA-Public Use
  Company Number: DE-NOVOPROD-636872

PATIENT
  Age: 23 Year
  Sex: Female

DRUGS (2)
  1. NOVORAPID [Suspect]
     Active Substance: INSULIN ASPART
     Dosage: 16 U, QD
     Route: 058
     Dates: start: 20181127
  2. NOVORAPID [Suspect]
     Active Substance: INSULIN ASPART
     Indication: TYPE 1 DIABETES MELLITUS
     Dosage: 16 U, QD
     Route: 058

REACTIONS (2)
  - Diabetic ketoacidosis [Unknown]
  - Product physical issue [Unknown]

NARRATIVE: CASE EVENT DATE: 20181127
